FAERS Safety Report 8238199-1 (Version None)
Quarter: 2012Q1

REPORT INFORMATION
  Report Type: 
  Country: None (occurrence: None)
  Receive Date: 20120327
  Receipt Date: 20120321
  Transmission Date: 20120608
  Serious: Yes (Hospitalization)
  Sender: FDA-Public Use
  Company Number: PHHO2012US004768

PATIENT
  Sex: Female
  Weight: 55 kg

DRUGS (3)
  1. AFINITOR [Suspect]
     Indication: BREAST CANCER METASTATIC
     Dosage: DOUBLE BLINDED
     Route: 048
     Dates: start: 20110502, end: 20120309
  2. COMPARATOR TRASTUZUMAB [Suspect]
     Indication: BREAST CANCER METASTATIC
     Dosage: 114 MG, DAILY
     Route: 042
     Dates: start: 20110502, end: 20120305
  3. PACLITAXEL [Suspect]
     Indication: BREAST CANCER METASTATIC
     Dosage: UNK
     Route: 048
     Dates: end: 20110919

REACTIONS (1)
  - METASTASES TO CENTRAL NERVOUS SYSTEM [None]
